FAERS Safety Report 7229801-1 (Version None)
Quarter: 2011Q1

REPORT INFORMATION
  Report Type: 
  Country: None (occurrence: None)
  Receive Date: 20110117
  Receipt Date: 20110112
  Transmission Date: 20110831
  Serious: Yes (Hospitalization, Other)
  Sender: FDA-Public Use
  Company Number: US-ABBOTT-10P-163-0690207-00

PATIENT
  Sex: Female
  Weight: 47.67 kg

DRUGS (3)
  1. IBUPROFEN [Concomitant]
     Indication: RHEUMATOID ARTHRITIS
  2. CAPADEX [Concomitant]
     Indication: PRODUCT USED FOR UNKNOWN INDICATION
  3. HUMIRA [Suspect]
     Indication: RHEUMATOID ARTHRITIS
     Dates: start: 20090301, end: 20101108

REACTIONS (20)
  - CENTRAL NERVOUS SYSTEM LESION [None]
  - PARAESTHESIA [None]
  - EYE PAIN [None]
  - RIB FRACTURE [None]
  - HEADACHE [None]
  - DIZZINESS [None]
  - NAUSEA [None]
  - VERTIGO [None]
  - GASTROOESOPHAGEAL REFLUX DISEASE [None]
  - PNEUMOTHORAX [None]
  - PAIN [None]
  - CONCUSSION [None]
  - ANTEROGRADE AMNESIA [None]
  - DECREASED APPETITE [None]
  - CARTILAGE INJURY [None]
  - TACHYCARDIA [None]
  - ABDOMINAL PAIN UPPER [None]
  - ROAD TRAFFIC ACCIDENT [None]
  - RETROGRADE AMNESIA [None]
  - SUTURE INSERTION [None]
